FAERS Safety Report 6896561-3 (Version None)
Quarter: 2010Q3

REPORT INFORMATION
  Report Type: 
  Country: None (occurrence: None)
  Receive Date: 20100802
  Receipt Date: 20090322
  Transmission Date: 20110219
  Serious: No
  Sender: FDA-Public Use
  Company Number: US-PFIZER INC-2009159883

PATIENT
  Sex: Male
  Weight: 77.1 kg

DRUGS (3)
  1. NORVASC [Suspect]
     Indication: HYPERTENSION
     Dosage: 5 MG, 1X/DAY
     Dates: start: 20090101
  2. SIMVASTATIN [Concomitant]
  3. ANTIHISTAMINES [Suspect]

REACTIONS (3)
  - ABDOMINAL PAIN [None]
  - ABDOMINAL TENDERNESS [None]
  - FLATULENCE [None]
